FAERS Safety Report 7410975-4 (Version None)
Quarter: 2011Q2

REPORT INFORMATION
  Report Type: 
  Country: None (occurrence: None)
  Receive Date: 20110413
  Receipt Date: 20110321
  Transmission Date: 20111010
  Serious: No
  Sender: FDA-Public Use
  Company Number: US-B.I. PHARMACEUTICALS,INC./RIDGEFIELD-2010-BP-15167BP

PATIENT
  Sex: Female

DRUGS (10)
  1. ADVAIR DISKUS 100/50 [Concomitant]
  2. LISINOPRIL [Concomitant]
  3. INHALATION AEROSOL [Concomitant]
  4. SPIRIVA [Suspect]
     Indication: CHRONIC OBSTRUCTIVE PULMONARY DISEASE
     Dosage: 18 MCG
     Route: 055
     Dates: start: 20100101
  5. SPIRIVA [Suspect]
     Indication: DYSPNOEA
  6. LASIX [Concomitant]
  7. ALBUTEROL [Concomitant]
  8. METFORMIN [Concomitant]
  9. ATROVENT [Concomitant]
  10. ATENOLOL [Concomitant]

REACTIONS (1)
  - DYSPNOEA [None]
